FAERS Safety Report 8515489-6 (Version None)
Quarter: 2012Q3

REPORT INFORMATION
  Report Type: 
  Country: None (occurrence: None)
  Receive Date: 20120705
  Receipt Date: 20120627
  Transmission Date: 20120928
  Serious: Yes (Death, Hospitalization, Other)
  Sender: FDA-Public Use
  Company Number: 2012-2231

PATIENT
  Sex: Female

DRUGS (9)
  1. PANCREASE (PANCREASE) [Concomitant]
  2. SUTENT (SU 11248) [Concomitant]
  3. SOMATULINE AUTOSOLUTION 60 MG (LANREOTIDE AUTOGEL() (LANREOTIDE) [Suspect]
  4. SOMATULINE AUTOSOLUTION 60 MG (LANREOTIDE AUTOGEL() (LANREOTIDE) [Suspect]
  5. SOMATULINE AUTOSOLUTION 60 MG (LANREOTIDE AUTOGEL() (LANREOTIDE) [Suspect]
     Indication: PANCREATIC NEUROENDOCRINE TUMOUR
     Dosage: 60 MG (60 MG, 1 IN 28 D), SUBCUTANEOUS
     Route: 058
  6. OMEPRAZOLE [Concomitant]
  7. NITROFURANTOIN [Concomitant]
  8. LISINOPRIL [Concomitant]
  9. SOMATULINE AUTOSOLUTION 60 MG (LANREOTIDE AUTOGEL() (LANREOTIDE) [Suspect]

REACTIONS (1)
  - SPINAL FRACTURE [None]
